FAERS Safety Report 4360259-6 (Version None)
Quarter: 2004Q2

REPORT INFORMATION
  Report Type: 
  Country: None (occurrence: None)
  Receive Date: 20040519
  Receipt Date: 20040406
  Transmission Date: 20050107
  Serious: Yes (Life-Threatening)
  Sender: FDA-Public Use
  Company Number: 200411135EU

PATIENT
  Age: 56 Year
  Sex: Male

DRUGS (5)
  1. ZARIVIZ [Suspect]
     Indication: CHOLECYSTECTOMY
     Route: 042
     Dates: start: 20040325, end: 20040325
  2. PROPOFOL [Concomitant]
     Indication: ANAESTHESIA
  3. SUCCINYLCHOLINE [Concomitant]
     Indication: ANAESTHESIA
  4. VECURONIUM BROMIDE [Concomitant]
     Indication: ANAESTHESIA
  5. FENTANYL [Concomitant]
     Indication: ANAESTHESIA

REACTIONS (4)
  - ANAPHYLACTIC SHOCK [None]
  - DRUG HYPERSENSITIVITY [None]
  - HYPOTENSION [None]
  - PULMONARY OEDEMA [None]
